FAERS Safety Report 6376797-0 (Version None)
Quarter: 2009Q3

REPORT INFORMATION
  Report Type: 
  Country: None (occurrence: None)
  Receive Date: 20090924
  Receipt Date: 20090924
  Transmission Date: 20100115
  Serious: Yes (Hospitalization)
  Sender: FDA-Public Use
  Company Number: None

PATIENT
  Sex: Female
  Weight: 86.1834 kg

DRUGS (2)
  1. ROBINUL [Suspect]
     Indication: MUSCLE RELAXANT THERAPY
     Dosage: 0.2MG IV  1100, 1120, 1212
     Route: 042
  2. FENTANYL-100 [Suspect]
     Indication: PAIN
     Dosage: 25MG IV
     Route: 042

REACTIONS (5)
  - DYSKINESIA [None]
  - HEART RATE DECREASED [None]
  - NO THERAPEUTIC RESPONSE [None]
  - RESPIRATORY RATE DECREASED [None]
  - TREMOR [None]
